FAERS Safety Report 8570602-X (Version None)
Quarter: 2012Q3

REPORT INFORMATION
  Report Type: 
  Country: None (occurrence: None)
  Receive Date: 20120804
  Receipt Date: 20120723
  Transmission Date: 20120928
  Serious: No
  Sender: FDA-Public Use
  Company Number: US-009507513-1207USA011425

PATIENT

DRUGS (10)
  1. TIZANIDINE HYDROCHLORIDE [Suspect]
  2. IMITREX [Suspect]
  3. MELOXICAM [Suspect]
  4. PRILOSEC [Suspect]
     Route: 048
  5. OXYBUTYNIN [Suspect]
  6. WELLBUTRIN XL [Suspect]
  7. BACLOFEN [Suspect]
  8. ZOCOR [Suspect]
     Route: 048
  9. BETASERON [Suspect]
  10. TESTIM [Suspect]

REACTIONS (2)
  - DYSPEPSIA [None]
  - GASTROOESOPHAGEAL REFLUX DISEASE [None]
